FAERS Safety Report 24608780 (Version 1)
Quarter: 2024Q4

REPORT INFORMATION
  Report Type: Spontaneous
  Country: US (occurrence: US)
  Receive Date: 20241112
  Receipt Date: 20241112
  Transmission Date: 20250114
  Serious: Yes (Other)
  Sender: ELI LILLY AND COMPANY
  Company Number: US-ELI_LILLY_AND_COMPANY-US202410022358

PATIENT
  Age: 49 Year
  Sex: Female

DRUGS (1)
  1. CYMBALTA [Suspect]
     Active Substance: DULOXETINE HYDROCHLORIDE
     Indication: Depression
     Dosage: 30 MG, UNKNOWN
     Route: 065
     Dates: start: 202407

REACTIONS (5)
  - Osteomyelitis [Unknown]
  - Pain in jaw [Unknown]
  - Urticaria [Unknown]
  - Hypersensitivity [Unknown]
  - Stomatitis [Unknown]
